FAERS Safety Report 14926883 (Version 1)
Quarter: 2018Q2

REPORT INFORMATION
  Report Type: Spontaneous
  Country: US (occurrence: US)
  Receive Date: 20180523
  Receipt Date: 20180523
  Transmission Date: 20180711
  Serious: No
  Sender: FDA-Public Use
  Company Number: US-ASTRAZENECA-2018SE56151

PATIENT
  Sex: Male

DRUGS (2)
  1. FASENRA [Suspect]
     Active Substance: BENRALIZUMAB
     Indication: ASTHMA
     Dosage: 30 MG, 1 INJECTION EVERY 4 WEEK FOR THE FIRST 3 INJECTIONS
     Route: 058
     Dates: start: 20180420
  2. PREDNISONE. [Concomitant]
     Active Substance: PREDNISONE
     Dosage: UNKNOWN
     Route: 065

REACTIONS (2)
  - Lymphadenopathy [Unknown]
  - Swelling face [Unknown]

NARRATIVE: CASE EVENT DATE: 20180421
